FAERS Safety Report 23680717 (Version 1)
Quarter: 2024Q1

REPORT INFORMATION
  Report Type: Spontaneous
  Country: US (occurrence: US)
  Receive Date: 20240328
  Receipt Date: 20240328
  Transmission Date: 20240410
  Serious: No
  Sender: FDA-Public Use
  Company Number: US-AMGEN-USASP2024061892

PATIENT
  Age: 63 Year
  Sex: Female

DRUGS (2)
  1. AIMOVIG [Suspect]
     Active Substance: ERENUMAB-AOOE
     Indication: Tension headache
     Dosage: 70 MILLIGRAM, QMO
     Route: 058
     Dates: start: 2022
  2. GLUCOTROL [Concomitant]
     Active Substance: GLIPIZIDE
     Indication: Type 1 diabetes mellitus
     Dosage: UNK

REACTIONS (3)
  - Blood glucose decreased [Unknown]
  - Device difficult to use [Unknown]
  - Drug dose omission by device [Unknown]

NARRATIVE: CASE EVENT DATE: 20230101
